FAERS Safety Report 17439391 (Version 1)
Quarter: 2020Q1

REPORT INFORMATION
  Report Type: Spontaneous
  Country: DE (occurrence: DE)
  Receive Date: 20200220
  Receipt Date: 20200220
  Transmission Date: 20200409
  Serious: Yes (Hospitalization)
  Sender: FDA-Public Use
  Company Number: DE-ACCORD-173163

PATIENT
  Age: 76 Year
  Sex: Male

DRUGS (1)
  1. RAMIPRIL. [Suspect]
     Active Substance: RAMIPRIL
     Indication: PRODUCT USED FOR UNKNOWN INDICATION
     Dosage: 5 MG, 1-0-0-0

REACTIONS (5)
  - Abdominal pain [Unknown]
  - Abdominal pain upper [Unknown]
  - Flatulence [Unknown]
  - Haematochezia [Unknown]
  - Dyspepsia [Unknown]
